FAERS Safety Report 5883081-8 (Version None)
Quarter: 2008Q3

REPORT INFORMATION
  Report Type: 
  Country: None (occurrence: None)
  Receive Date: 20080913
  Receipt Date: 20080828
  Transmission Date: 20090109
  Serious: No
  Sender: FDA-Public Use
  Company Number: US-ABBOTT-08P-163-0473099-00

PATIENT
  Sex: Male

DRUGS (2)
  1. HUMIRA [Suspect]
     Indication: SARCOIDOSIS
     Dates: start: 20080821
  2. HUMIRA [Suspect]
     Indication: JUVENILE ARTHRITIS

REACTIONS (4)
  - ACCIDENTAL NEEDLE STICK [None]
  - CRYING [None]
  - NERVOUSNESS [None]
  - PROCEDURAL COMPLICATION [None]
